FAERS Safety Report 18267058 (Version 2)
Quarter: 2020Q4

REPORT INFORMATION
  Report Type: Spontaneous
  Country: IT (occurrence: IT)
  Receive Date: 20200915
  Receipt Date: 20201006
  Transmission Date: 20210113
  Serious: Yes (Other)
  Sender: FDA-Public Use
  Company Number: IT-SA-2020SA249418

PATIENT

DRUGS (1)
  1. LEMTRADA [Suspect]
     Active Substance: ALEMTUZUMAB
     Indication: MULTIPLE SCLEROSIS
     Dosage: UNK
     Route: 041
     Dates: start: 201903, end: 201903

REACTIONS (2)
  - Adenocarcinoma gastric [Unknown]
  - Anaemia [Unknown]

NARRATIVE: CASE EVENT DATE: 2020
